FAERS Safety Report 9192557 (Version 1)
Quarter: 2013Q1

REPORT INFORMATION
  Report Type: Spontaneous
  Country: US (occurrence: US)
  Receive Date: 20130327
  Receipt Date: 20130327
  Transmission Date: 20140127
  Serious: No
  Sender: FDA-Public Use
  Company Number: US-009507513-1303USA012903

PATIENT
  Sex: Female

DRUGS (2)
  1. PEGINTRON [Suspect]
     Dosage: UNK
     Dates: start: 2013
  2. REBETOL [Suspect]
     Dosage: 2 TABLETS EVERY MORNING AND 3 TABLETS EVERY EVENING
     Dates: start: 2013

REACTIONS (1)
  - Erythema [Not Recovered/Not Resolved]
